FAERS Safety Report 11773289 (Version 1)
Quarter: 2015Q4

REPORT INFORMATION
  Report Type: Spontaneous
  Country: US (occurrence: US)
  Receive Date: 20151124
  Receipt Date: 20151124
  Transmission Date: 20160304
  Serious: No
  Sender: FDA-Public Use
  Company Number: US-BAYER-2015-469825

PATIENT
  Age: 67 Year
  Sex: Female
  Weight: 79.37 kg

DRUGS (1)
  1. OXYTROL FOR WOMEN [Suspect]
     Active Substance: OXYBUTYNIN
     Indication: URINARY INCONTINENCE
     Dosage: 1 DF, PRN
     Route: 061
     Dates: start: 20151101

REACTIONS (2)
  - Skin irritation [Recovered/Resolved]
  - Product adhesion issue [None]

NARRATIVE: CASE EVENT DATE: 20151103
